FAERS Safety Report 5005843-1 (Version None)
Quarter: 2006Q2

REPORT INFORMATION
  Report Type: 
  Country: None (occurrence: None)
  Receive Date: 20060517
  Receipt Date: 20060517
  Transmission Date: 20061013
  Serious: Yes (Hospitalization)
  Sender: FDA-Public Use
  Company Number: None

PATIENT
  Age: 58 Year
  Sex: Male

DRUGS (7)
  1. NAPROXEN [Suspect]
     Indication: PAIN
     Dosage: 500MG  BID
     Dates: start: 20021201
  2. ASPIRIN [Suspect]
     Indication: PAIN
     Dosage: 325MG QD
     Dates: start: 20041201
  3. BC POWDER [Suspect]
     Indication: PAIN
  4. ISOSORBIDE [Concomitant]
  5. SENNOSIDES [Concomitant]
  6. HYDROCHLOROTHIAZIDE [Concomitant]
  7. ZOLOFT [Concomitant]

REACTIONS (1)
  - GASTROINTESTINAL HAEMORRHAGE [None]
